FAERS Safety Report 5163372-9 (Version None)
Quarter: 2006Q4

REPORT INFORMATION
  Report Type: 
  Country: None (occurrence: None)
  Receive Date: 20061124
  Receipt Date: 20061110
  Transmission Date: 20070319
  Serious: Yes (Other)
  Sender: FDA-Public Use
  Company Number: 2006139312

PATIENT
  Sex: Female

DRUGS (1)
  1. NEURONTIN [Suspect]
     Indication: BACK PAIN
     Dosage: 1200 MG (300 MG, 4 IN 1 D)
     Dates: start: 20000101

REACTIONS (2)
  - DRUG INEFFECTIVE [None]
  - SURGERY [None]
